FAERS Safety Report 23853891 (Version 1)
Quarter: 2024Q2

REPORT INFORMATION
  Report Type: Spontaneous
  Country: US (occurrence: None)
  Receive Date: 20240514
  Receipt Date: 20240514
  Transmission Date: 20240716
  Serious: Yes (Other)
  Sender: FDA-Public Use
  Company Number: None

PATIENT
  Age: 53 Year
  Sex: Female
  Weight: 62.55 kg

DRUGS (3)
  1. IMIQUIMOD [Suspect]
     Active Substance: IMIQUIMOD
     Indication: Basal cell carcinoma
     Dosage: 1 PACKET AT BEDTIME TOPICAL
     Route: 061
     Dates: start: 20240331, end: 20240509
  2. TRIVORA [Concomitant]
     Active Substance: ETHINYL ESTRADIOL\LEVONORGESTREL
  3. VITAMIN D [Concomitant]
     Active Substance: VITAMIN D NOS

REACTIONS (5)
  - Pain in extremity [None]
  - Pain in extremity [None]
  - Myalgia [None]
  - Muscular weakness [None]
  - Aphthous ulcer [None]

NARRATIVE: CASE EVENT DATE: 20240418
